FAERS Safety Report 11122373 (Version 2)
Quarter: 2016Q2

REPORT INFORMATION
  Report Type: Report from Study
  Country: ES (occurrence: ES)
  Receive Date: 20150519
  Receipt Date: 20160526
  Transmission Date: 20160815
  Serious: Yes (Hospitalization, Other)
  Sender: FDA-Public Use
  Company Number: ES-JNJFOC-20150506989

PATIENT

DRUGS (5)
  1. PALIPERIDONE. [Suspect]
     Active Substance: PALIPERIDONE
     Indication: PERSONALITY DISORDER
     Route: 048
  2. OLANZAPINE. [Suspect]
     Active Substance: OLANZAPINE
     Indication: PERSONALITY DISORDER
     Route: 065
  3. XEPLION [Suspect]
     Active Substance: PALIPERIDONE PALMITATE
     Indication: PERSONALITY DISORDER
     Dosage: MEDIUM DOSE 105, 36
     Route: 030
  4. XEPLION [Suspect]
     Active Substance: PALIPERIDONE PALMITATE
     Indication: PERSONALITY DISORDER
     Route: 030
     Dates: start: 201201, end: 201506
  5. QUETIAPINE. [Suspect]
     Active Substance: QUETIAPINE
     Indication: PERSONALITY DISORDER
     Route: 065

REACTIONS (7)
  - Off label use [Unknown]
  - Hospitalisation [Unknown]
  - Flat affect [Unknown]
  - Blood prolactin abnormal [Unknown]
  - Drug intolerance [Unknown]
  - Emergency care [Unknown]
  - Sexual dysfunction [Unknown]
